FAERS Safety Report 23911421 (Version 1)
Quarter: 2024Q2

REPORT INFORMATION
  Report Type: Spontaneous
  Country: US (occurrence: US)
  Receive Date: 20240528
  Receipt Date: 20240528
  Transmission Date: 20240716
  Serious: No
  Sender: FDA-Public Use
  Company Number: US-INSUD PHARMA-2405US04033

PATIENT

DRUGS (1)
  1. PROGESTERONE [Suspect]
     Active Substance: PROGESTERONE
     Indication: Heavy menstrual bleeding
     Dosage: UNK
     Route: 048
     Dates: start: 2023

REACTIONS (5)
  - Abnormal withdrawal bleeding [Not Recovered/Not Resolved]
  - Product dose omission issue [Unknown]
  - Product odour abnormal [Unknown]
  - Drug effective for unapproved indication [Unknown]
  - Product prescribing issue [Unknown]

NARRATIVE: CASE EVENT DATE: 20240501
